FAERS Safety Report 9045327 (Version 3)
Quarter: 2013Q1

REPORT INFORMATION
  Report Type: Spontaneous
  Country: DK (occurrence: FR)
  Receive Date: 20130131
  Receipt Date: 20130208
  Transmission Date: 20140127
  Serious: Yes (Death)
  Sender: FDA-Public Use
  Company Number: FR-FRI-1000042328

PATIENT
  Sex: Female

DRUGS (4)
  1. ESCITALOPRAM [Suspect]
     Indication: DEPRESSION
     Dosage: 5 MG
     Route: 048
     Dates: start: 20121114, end: 20121117
  2. CORDARONE [Concomitant]
  3. PLAVIX [Concomitant]
  4. BURINEX [Concomitant]

REACTIONS (5)
  - Cardiac failure [Fatal]
  - Hyponatraemia [Fatal]
  - Vomiting [Fatal]
  - Nausea [Fatal]
  - Diabetes mellitus [Fatal]
